FAERS Safety Report 5268855-9 (Version None)
Quarter: 2007Q1

REPORT INFORMATION
  Report Type: 
  Country: None (occurrence: None)
  Receive Date: 20061213
  Receipt Date: 20031013
  Transmission Date: 20070707
  Serious: Yes (Other)
  Sender: FDA-Public Use
  Company Number: 2006UW13841

PATIENT

DRUGS (1)
  1. IRESSA [Suspect]

REACTIONS (2)
  - DERMATITIS [None]
  - SKIN EXFOLIATION [None]
